FAERS Safety Report 19159347 (Version 1)
Quarter: 2021Q2

REPORT INFORMATION
  Report Type: Spontaneous
  Country: US (occurrence: US)
  Receive Date: 20210420
  Receipt Date: 20210420
  Transmission Date: 20210717
  Serious: No
  Sender: FDA-Public Use
  Company Number: US-ASTRAZENECA-2021A272408

PATIENT
  Sex: Female
  Weight: 72.1 kg

DRUGS (4)
  1. BYDUREON [Suspect]
     Active Substance: EXENATIDE
     Indication: TYPE 2 DIABETES MELLITUS
     Dosage: DOSE UNKNOWN, ONCE A WEEK
     Route: 058
  2. MEDICATION FOR CHOLESTEROL [Concomitant]
     Indication: BLOOD CHOLESTEROL
  3. BYDUREON BCISE [Suspect]
     Active Substance: EXENATIDE
     Indication: TYPE 2 DIABETES MELLITUS
     Route: 058
  4. METFORMIN [Concomitant]
     Active Substance: METFORMIN HYDROCHLORIDE
     Route: 065

REACTIONS (7)
  - Blood glucose increased [Unknown]
  - Product preparation error [Unknown]
  - Drug dose omission by device [Unknown]
  - Device leakage [Unknown]
  - Injection site mass [Unknown]
  - Wrong technique in device usage process [Unknown]
  - Injection site pain [Unknown]
